FAERS Safety Report 6226656-9 (Version None)
Quarter: 2009Q2

REPORT INFORMATION
  Report Type: 
  Country: None (occurrence: None)
  Receive Date: 20090610
  Receipt Date: 20090608
  Transmission Date: 20091009
  Serious: Yes (Hospitalization)
  Sender: FDA-Public Use
  Company Number: DE-WYE-G03808809

PATIENT
  Age: 35 Year
  Sex: Female

DRUGS (4)
  1. VENLAFAXINE HCL [Suspect]
     Dosage: OVERDOSE
     Route: 048
     Dates: start: 20090606, end: 20090606
  2. AMITRIPTYLINE HCL [Suspect]
     Dosage: OVERDOSE
     Route: 048
     Dates: start: 20090606, end: 20090606
  3. CIPRALEX (ESCITALOPRAM, 0) [Suspect]
     Dosage: OVERDOSE
     Route: 048
     Dates: start: 20090606, end: 20090606
  4. LYRICA [Suspect]
     Dosage: OVERDOSE
     Route: 048
     Dates: start: 20090606, end: 20090606

REACTIONS (5)
  - COMA [None]
  - CONVULSION [None]
  - INTENTIONAL OVERDOSE [None]
  - RESPIRATORY DEPRESSION [None]
  - SUICIDE ATTEMPT [None]
